FAERS Safety Report 8905435 (Version 1)
Quarter: 2012Q4

REPORT INFORMATION
  Report Type: 
  Country: CO (occurrence: CO)
  Receive Date: 20121111
  Receipt Date: 20121111
  Transmission Date: 20130627
  Serious: Yes (Other)
  Sender: FDA-Public Use
  Company Number: PHHY2012CO103435

PATIENT
  Age: 74 Year
  Sex: Female

DRUGS (1)
  1. ACLASTA [Suspect]
     Indication: OSTEOPOROSIS
     Dosage: 5 mg/100 ml
     Route: 042
     Dates: start: 20121022

REACTIONS (5)
  - Haemorrhage intracranial [Recovering/Resolving]
  - Subarachnoid haemorrhage [Recovering/Resolving]
  - Hypertensive emergency [Recovering/Resolving]
  - Blood pressure increased [Recovering/Resolving]
  - Syncope [Recovering/Resolving]
